FAERS Safety Report 6174049-5 (Version None)
Quarter: 2009Q2

REPORT INFORMATION
  Report Type: 
  Country: None (occurrence: None)
  Receive Date: 20090430
  Receipt Date: 20080303
  Transmission Date: 20091009
  Serious: No
  Sender: FDA-Public Use
  Company Number: US-ASTRAZENECA-2008UW04354

PATIENT
  Sex: Female

DRUGS (2)
  1. NEXIUM [Suspect]
     Indication: GASTROOESOPHAGEAL REFLUX DISEASE
     Route: 048
     Dates: start: 20080228
  2. NEXIUM [Suspect]
     Indication: ULCER
     Route: 048
     Dates: start: 20080228

REACTIONS (2)
  - BURNING SENSATION [None]
  - THERAPEUTIC RESPONSE DECREASED [None]
